FAERS Safety Report 15929432 (Version 2)
Quarter: 2019Q1

REPORT INFORMATION
  Report Type: Spontaneous
  Country: US (occurrence: US)
  Receive Date: 20190206
  Receipt Date: 20190219
  Transmission Date: 20190417
  Serious: No
  Sender: FDA-Public Use
  Company Number: US-ALLERGAN-1836663US

PATIENT
  Age: 54 Year
  Sex: Female

DRUGS (15)
  1. BOTOX COSMETIC [Suspect]
     Active Substance: ONABOTULINUMTOXINA
     Indication: SKIN WRINKLING
     Dosage: 8 UNITS, SINGLE
     Route: 030
     Dates: start: 20180213, end: 20180213
  2. BOTOX COSMETIC [Suspect]
     Active Substance: ONABOTULINUMTOXINA
     Indication: SKIN WRINKLING
     Dosage: 20 UNITS, SINGLE
     Route: 030
     Dates: start: 20180213, end: 20180213
  3. JUVEDERM VOLLURE XC [Concomitant]
     Indication: SKIN WRINKLING
     Dosage: UNK UNK, SINGLE
     Dates: start: 20180227, end: 20180227
  4. PRILOSEC [Concomitant]
     Active Substance: OMEPRAZOLE MAGNESIUM
     Dosage: UNK
  5. VALSARTAN. [Concomitant]
     Active Substance: VALSARTAN
     Dosage: UNK
  6. JUVEDERM VOLUMA XC [Concomitant]
     Active Substance: HYALURONIC ACID\LIDOCAINE HYDROCHLORIDE
  7. EPIPEN [Concomitant]
     Active Substance: EPINEPHRINE
     Indication: FOOD ALLERGY
     Dosage: UNK UNK, PRN
  8. BOTOX COSMETIC [Suspect]
     Active Substance: ONABOTULINUMTOXINA
     Indication: SKIN WRINKLING
  9. JUVEDERM ULTRA PLUS [Concomitant]
     Active Substance: HYALURONIC ACID\LIDOCAINE HYDROCHLORIDE
  10. ESCITALOPRAM [Concomitant]
     Active Substance: ESCITALOPRAM OXALATE
     Dosage: UNK
  11. ATORVASTATIN [Concomitant]
     Active Substance: ATORVASTATIN
     Dosage: UNK
  12. BUPROPION. [Concomitant]
     Active Substance: BUPROPION
     Dosage: UNK
  13. METHYLPHENIDATE. [Concomitant]
     Active Substance: METHYLPHENIDATE
     Dosage: UNK
  14. JUVEDERM VOLLURE XC [Concomitant]
     Indication: SKIN WRINKLING
     Dosage: UNK UNK, SINGLE
     Dates: start: 20180213, end: 20180213
  15. VALACYCLOVIR [Concomitant]
     Active Substance: VALACYCLOVIR HYDROCHLORIDE

REACTIONS (2)
  - Off label use [Unknown]
  - Oral disorder [Not Recovered/Not Resolved]

NARRATIVE: CASE EVENT DATE: 20180213
